FAERS Safety Report 24653712 (Version 2)
Quarter: 2025Q2

REPORT INFORMATION
  Report Type: Spontaneous
  Country: DE (occurrence: DE)
  Receive Date: 20241122
  Receipt Date: 20250401
  Transmission Date: 20250717
  Serious: Yes (Other)
  Sender: DR REDDYS
  Company Number: None

PATIENT
  Age: 38 Year
  Sex: Female
  Weight: 70 kg

DRUGS (18)
  1. FENTANYL [Suspect]
     Active Substance: FENTANYL
     Indication: Endotracheal intubation
  2. FENTANYL [Suspect]
     Active Substance: FENTANYL
  3. CLINDAMYCIN [Suspect]
     Active Substance: CLINDAMYCIN
     Indication: Antibiotic prophylaxis
  4. CLINDAMYCIN [Suspect]
     Active Substance: CLINDAMYCIN
  5. GENTAMICIN [Suspect]
     Active Substance: GENTAMICIN
     Indication: Product used for unknown indication
  6. ROCURONIUM BROMIDE [Suspect]
     Active Substance: ROCURONIUM BROMIDE
     Indication: Endotracheal intubation
  7. ROCURONIUM BROMIDE [Suspect]
     Active Substance: ROCURONIUM BROMIDE
     Indication: Maintenance of anaesthesia
  8. ROCURONIUM BROMIDE [Suspect]
     Active Substance: ROCURONIUM BROMIDE
     Indication: Endotracheal intubation
  9. EPINEPHRINE [Suspect]
     Active Substance: EPINEPHRINE
     Indication: Anaesthesia
     Route: 042
  10. EPINEPHRINE [Suspect]
     Active Substance: EPINEPHRINE
     Indication: Hypotension
  11. EPINEPHRINE [Suspect]
     Active Substance: EPINEPHRINE
     Route: 042
  12. DESFLURANE [Suspect]
     Active Substance: DESFLURANE
     Indication: Maintenance of anaesthesia
  13. DESFLURANE [Suspect]
     Active Substance: DESFLURANE
     Indication: Anaesthesia
  14. REMIFENTANIL [Suspect]
     Active Substance: REMIFENTANIL
     Indication: Maintenance of anaesthesia
  15. REMIFENTANIL [Suspect]
     Active Substance: REMIFENTANIL
     Indication: Anaesthesia
  16. THIOPENTAL SODIUM [Suspect]
     Active Substance: THIOPENTAL SODIUM
     Indication: Endotracheal intubation
  17. ATOSIBAN [Suspect]
     Active Substance: ATOSIBAN
     Indication: Product used for unknown indication
  18. GENTAMICIN SULFATE [Suspect]
     Active Substance: GENTAMICIN SULFATE
     Indication: Antibiotic prophylaxis

REACTIONS (3)
  - Premature rupture of membranes [Unknown]
  - Exposure during pregnancy [Unknown]
  - Premature delivery [Unknown]
